FAERS Safety Report 6755829-1 (Version None)
Quarter: 2010Q2

REPORT INFORMATION
  Report Type: 
  Country: None (occurrence: None)
  Receive Date: 20100604
  Receipt Date: 20100526
  Transmission Date: 20101027
  Serious: Yes (Hospitalization)
  Sender: FDA-Public Use
  Company Number: US-JNJFOC-20100510481

PATIENT
  Age: 85 Year
  Sex: Male
  Weight: 92.53 kg

DRUGS (16)
  1. EXTRA STRENGTH TYLENOL [Suspect]
     Indication: BACK PAIN
     Route: 048
  2. EXTRA STRENGTH TYLENOL [Suspect]
     Indication: PAIN IN EXTREMITY
     Route: 048
  3. MIDODRINE HYDROCHLORIDE [Concomitant]
     Indication: BLOOD PRESSURE ABNORMAL
  4. NAMENDA [Concomitant]
     Indication: MEMORY IMPAIRMENT
  5. AMIODARONE HYDROCHLORIDE [Concomitant]
     Indication: CARDIAC DISORDER
  6. RANEXA [Concomitant]
     Indication: CARDIAC DISORDER
  7. FISH OIL [Concomitant]
     Indication: CARDIAC DISORDER
  8. VITAMIN D [Concomitant]
  9. VITAMINE E [Concomitant]
     Indication: PROPHYLAXIS
  10. VITAMINE E [Concomitant]
     Indication: CARDIAC DISORDER
  11. ROZEREM [Concomitant]
     Indication: PAIN IN EXTREMITY
  12. NIASPAN [Concomitant]
     Indication: CARDIAC DISORDER
  13. ARICEPT [Concomitant]
     Indication: MEMORY IMPAIRMENT
  14. ZETIA [Concomitant]
     Indication: CARDIAC DISORDER
  15. ZOCOR [Concomitant]
     Indication: CARDIAC DISORDER
  16. FLOMAX [Concomitant]
     Indication: FLUID RETENTION

REACTIONS (10)
  - ABDOMINAL PAIN UPPER [None]
  - DIARRHOEA [None]
  - INCORRECT DOSE ADMINISTERED [None]
  - INTENTIONAL DRUG MISUSE [None]
  - NAUSEA [None]
  - PRODUCT CONTAMINATION CHEMICAL [None]
  - PRODUCT ODOUR ABNORMAL [None]
  - PRODUCT QUALITY ISSUE [None]
  - VOMITING [None]
  - WEIGHT INCREASED [None]
